FAERS Safety Report 6238910-5 (Version None)
Quarter: 2009Q2

REPORT INFORMATION
  Report Type: 
  Country: None (occurrence: None)
  Receive Date: 20090622
  Receipt Date: 20090521
  Transmission Date: 20091009
  Serious: Yes (Other)
  Sender: FDA-Public Use
  Company Number: US-PFIZER INC-2005031807

PATIENT
  Sex: Male
  Weight: 112.03 kg

DRUGS (13)
  1. DILANTIN [Suspect]
     Indication: CONVULSION
     Route: 048
  2. ATENOLOL [Concomitant]
     Route: 065
  3. DIURETICS [Concomitant]
     Route: 065
  4. DOXEPIN [Concomitant]
  5. BELLASPON RETARD [Concomitant]
     Route: 065
  6. DIAZEPAM [Concomitant]
     Route: 065
  7. AXOTAL [Concomitant]
     Route: 065
  8. FENOFIBRATE [Concomitant]
     Route: 065
  9. EZETIMIBE [Concomitant]
     Route: 065
  10. LIPITOR [Concomitant]
  11. GEMFIBROZIL [Concomitant]
  12. PLAVIX [Concomitant]
  13. POTASSIUM [Concomitant]

REACTIONS (4)
  - BLOOD CHOLESTEROL INCREASED [None]
  - BRAIN NEOPLASM [None]
  - CONVULSION [None]
  - HYPERTENSION [None]
